FAERS Safety Report 7965097-0 (Version None)
Quarter: 2011Q4

REPORT INFORMATION
  Report Type: 
  Country: None (occurrence: None)
  Receive Date: 20111208
  Receipt Date: 20111125
  Transmission Date: 20120403
  Serious: Yes (Hospitalization)
  Sender: FDA-Public Use
  Company Number: US-BAYER-2011-040115

PATIENT
  Age: 22 Year
  Sex: Female
  Weight: 40 kg

DRUGS (8)
  1. YASMIN [Suspect]
     Indication: PREMENSTRUAL SYNDROME
     Dosage: UNK
     Dates: start: 20071208, end: 20080701
  2. NAPROXEN [Concomitant]
     Dosage: 500 MG, UNK
     Route: 048
  3. DROSPIRENONE AND ETHINYL ESTRADIOL [Suspect]
     Indication: CONTRACEPTION
     Dosage: UNK
     Dates: start: 20080701, end: 20100401
  4. YASMIN [Suspect]
     Indication: MENSTRUATION IRREGULAR
     Dosage: UNK
     Dates: start: 20060401, end: 20070501
  5. APAP W/BUTALBITAL [Concomitant]
     Indication: MIGRAINE
     Dosage: UNK UNK, EVERY 6 HOURS AS PRN
     Route: 048
     Dates: start: 20070901, end: 20080701
  6. ATIVAN [Concomitant]
     Route: 048
  7. YASMIN [Suspect]
     Indication: CONTRACEPTION
     Dosage: UNK
     Dates: start: 20030101, end: 20050601
  8. DROSPIRENONE AND ETHINYL ESTRADIOL [Suspect]
     Indication: PREMENSTRUAL SYNDROME

REACTIONS (6)
  - GALLBLADDER INJURY [None]
  - PAIN [None]
  - CHOLECYSTITIS CHRONIC [None]
  - EMOTIONAL DISTRESS [None]
  - ANXIETY [None]
  - ANHEDONIA [None]
